FAERS Safety Report 7639774-5 (Version None)
Quarter: 2011Q3

REPORT INFORMATION
  Report Type: 
  Country: None (occurrence: None)
  Receive Date: 20110727
  Receipt Date: 20110713
  Transmission Date: 20111222
  Serious: Yes (Other)
  Sender: FDA-Public Use
  Company Number: PHHY2011US61924

PATIENT
  Sex: Male

DRUGS (1)
  1. GLEEVEC [Suspect]

REACTIONS (3)
  - GASTROINTESTINAL STROMAL TUMOUR [None]
  - ABDOMINAL PAIN [None]
  - GASTROINTESTINAL NEOPLASM [None]
